FAERS Safety Report 4368791-6 (Version None)
Quarter: 2004Q2

REPORT INFORMATION
  Report Type: 
  Country: None (occurrence: None)
  Receive Date: 20040528
  Receipt Date: 20040524
  Transmission Date: 20050107
  Serious: Yes (Other)
  Sender: FDA-Public Use
  Company Number: 200417965BWH

PATIENT
  Sex: Male

DRUGS (1)
  1. CIPROFLOXACIN HYDROCHLORIDE [Suspect]
     Dosage: ORAL
     Route: 048

REACTIONS (3)
  - EYE DISORDER [None]
  - EYE SWELLING [None]
  - VISUAL ACUITY REDUCED [None]
